FAERS Safety Report 8046158-7 (Version None)
Quarter: 2012Q1

REPORT INFORMATION
  Report Type: 
  Country: None (occurrence: None)
  Receive Date: 20120113
  Receipt Date: 20120111
  Transmission Date: 20120608
  Serious: Yes (Hospitalization)
  Sender: FDA-Public Use
  Company Number: US-CELGENEUS-163-21880-11112900

PATIENT
  Sex: Male

DRUGS (9)
  1. REVLIMID [Suspect]
     Dosage: 10 MILLIGRAM
     Route: 048
     Dates: start: 20111007
  2. LASIX [Concomitant]
     Indication: FLUID RETENTION
     Route: 065
  3. LISINOPRIL [Concomitant]
     Route: 065
  4. ACTOS [Concomitant]
     Route: 065
  5. ASPIRIN [Concomitant]
     Route: 065
  6. LORATADINE [Concomitant]
     Route: 065
  7. METFORMIN HCL [Concomitant]
     Route: 065
  8. PLAVIX [Concomitant]
     Route: 065
  9. DIAMOX SRC [Concomitant]
     Route: 065

REACTIONS (2)
  - FLUID RETENTION [None]
  - SWELLING [None]
